FAERS Safety Report 8343947-6 (Version None)
Quarter: 2012Q2

REPORT INFORMATION
  Report Type: 
  Country: None (occurrence: None)
  Receive Date: 20120508
  Receipt Date: 20101020
  Transmission Date: 20120825
  Serious: No
  Sender: FDA-Public Use
  Company Number: US-TEVA-2010005531

PATIENT
  Age: 57 Year
  Sex: Female
  Weight: 62.5 kg

DRUGS (2)
  1. TREANDA [Suspect]
     Indication: NON-HODGKIN'S LYMPHOMA
     Route: 042
  2. RITUXAN [Concomitant]

REACTIONS (3)
  - EXTRAVASATION [None]
  - BLISTER [None]
  - THROMBOSIS IN DEVICE [None]
